FAERS Safety Report 4989891-3 (Version None)
Quarter: 2006Q2

REPORT INFORMATION
  Report Type: 
  Country: None (occurrence: None)
  Receive Date: 20060421
  Receipt Date: 20060407
  Transmission Date: 20061013
  Serious: Yes (Hospitalization)
  Sender: FDA-Public Use
  Company Number: 2006BH007697

PATIENT
  Age: 40 Year
  Sex: Female
  Weight: 81.6475 kg

DRUGS (1)
  1. GAMMAGARD LIQUID [Suspect]
     Dates: start: 20060403

REACTIONS (8)
  - ANTIBODY TEST POSITIVE [None]
  - ASTHENIA [None]
  - CHROMATURIA [None]
  - DIZZINESS [None]
  - HAEMOLYSIS [None]
  - LABORATORY TEST ABNORMAL [None]
  - MALAISE [None]
  - RASH [None]
